FAERS Safety Report 7745195-7 (Version None)
Quarter: 2011Q3

REPORT INFORMATION
  Report Type: 
  Country: None (occurrence: None)
  Receive Date: 20110908
  Receipt Date: 20110823
  Transmission Date: 20111222
  Serious: Yes (Other)
  Sender: FDA-Public Use
  Company Number: AUR-APL-2011-04797

PATIENT
  Age: 69 Year
  Sex: Female
  Weight: 53.51 kg

DRUGS (6)
  1. DIAZEPAM [Concomitant]
  2. LISINOPRIL [Suspect]
     Indication: HYPERTENSION
     Dates: start: 20060101, end: 20060101
  3. ZOLOFT [Suspect]
     Indication: ANXIETY
  4. ZOLOFT [Suspect]
     Indication: STRESS
  5. HYDROCHLOROTHIAZIDE [Concomitant]
  6. LEVOTHYROXINE SODIUM [Concomitant]

REACTIONS (6)
  - HYPERTENSION [None]
  - SWELLING FACE [None]
  - GLAUCOMA [None]
  - PHARYNGEAL OEDEMA [None]
  - SWOLLEN TONGUE [None]
  - DYSPNOEA [None]
